FAERS Safety Report 6145755-3 (Version None)
Quarter: 2009Q2

REPORT INFORMATION
  Report Type: 
  Country: None (occurrence: None)
  Receive Date: 20090407
  Receipt Date: 20090330
  Transmission Date: 20091009
  Serious: Yes (Other)
  Sender: FDA-Public Use
  Company Number: US-AMGEN-QUU339157

PATIENT
  Sex: Female

DRUGS (2)
  1. ENBREL [Suspect]
     Indication: RHEUMATOID ARTHRITIS
     Route: 058
     Dates: start: 20070701
  2. ASPIRIN 10GR TIMED DISINTEGRATION TAB [Concomitant]

REACTIONS (7)
  - BLADDER CYST [None]
  - MULTIPLE ALLERGIES [None]
  - OVARIAN CYST [None]
  - RENAL CYST [None]
  - RHEUMATOID ARTHRITIS [None]
  - SINUSITIS [None]
  - URINARY TRACT INFECTION [None]
